FAERS Safety Report 10478304 (Version 1)
Quarter: 2014Q3

REPORT INFORMATION
  Report Type: Spontaneous
  Country: US (occurrence: None)
  Receive Date: 20140925
  Receipt Date: 20140925
  Transmission Date: 20150326
  Serious: Yes (Other)
  Sender: FDA-Public Use
  Company Number: None

PATIENT
  Age: 23 Year
  Sex: Female
  Weight: 95.26 kg

DRUGS (2)
  1. LITHIUM [Suspect]
     Active Substance: LITHIUM CARBONATE
     Indication: BIPOLAR DISORDER
     Route: 048
     Dates: start: 20140724, end: 20140826
  2. LITHIUM [Suspect]
     Active Substance: LITHIUM CARBONATE
     Indication: DELUSION OF REPLACEMENT
     Route: 048
     Dates: start: 20140724, end: 20140826

REACTIONS (2)
  - Condition aggravated [None]
  - Delusion [None]

NARRATIVE: CASE EVENT DATE: 20140724
